FAERS Safety Report 10941251 (Version 2)
Quarter: 2015Q2

REPORT INFORMATION
  Report Type: Spontaneous
  Country: US (occurrence: US)
  Receive Date: 20150322
  Receipt Date: 20150524
  Transmission Date: 20150821
  Serious: Yes (Hospitalization)
  Sender: FDA-Public Use
  Company Number: US-JNJFOC-20131005121

PATIENT
  Sex: Female

DRUGS (6)
  1. DIOVAN/HCT [Concomitant]
  2. AMARYL [Concomitant]
     Active Substance: GLIMEPIRIDE
  3. LASIX [Concomitant]
     Active Substance: FUROSEMIDE
  4. INVOKANA [Suspect]
     Active Substance: CANAGLIFLOZIN
     Indication: PRODUCT USED FOR UNKNOWN INDICATION
     Route: 048
     Dates: start: 20130903, end: 20130910
  5. POTASSIUM [Concomitant]
     Active Substance: POTASSIUM
  6. ASPIRIN. [Concomitant]
     Active Substance: ASPIRIN

REACTIONS (1)
  - Rash generalised [Recovered/Resolved]

NARRATIVE: CASE EVENT DATE: 20130910
